FAERS Safety Report 13604407 (Version 1)
Quarter: 2017Q2

REPORT INFORMATION
  Report Type: Spontaneous
  Country: US (occurrence: US)
  Receive Date: 20170601
  Receipt Date: 20170601
  Transmission Date: 20170830
  Serious: No
  Sender: FDA-Public Use
  Company Number: None

PATIENT
  Age: 42 Year
  Sex: Male
  Weight: 94.5 kg

DRUGS (6)
  1. LAMICTAL [Concomitant]
     Active Substance: LAMOTRIGINE
  2. DEXTROAMPHET SACCHARAT, AMPHET ASPARTATE, DEXTROAMPHET SULFATE AND AMPHET SULFAT [Suspect]
     Active Substance: AMPHETAMINE ASPARTATE\AMPHETAMINE SULFATE\DEXTROAMPHETAMINE SACCHARATE\DEXTROAMPHETAMINE SULFATE
     Indication: ATTENTION DEFICIT/HYPERACTIVITY DISORDER
     Dosage: ?          QUANTITY:1 TABLET(S);?
     Route: 048
     Dates: start: 20170526, end: 20170601
  3. ADDERALL [Concomitant]
     Active Substance: AMPHETAMINE ASPARTATE\AMPHETAMINE SULFATE\DEXTROAMPHETAMINE SACCHARATE\DEXTROAMPHETAMINE SULFATE
  4. KLONIPIN [Concomitant]
     Active Substance: CLONAZEPAM
  5. MULTI VITAMIN [Concomitant]
     Active Substance: VITAMINS
  6. ZYPREXA [Concomitant]
     Active Substance: OLANZAPINE

REACTIONS (13)
  - Feeling abnormal [None]
  - Product substitution issue [None]
  - Nausea [None]
  - Impaired work ability [None]
  - Headache [None]
  - Anxiety [None]
  - Malaise [None]
  - Agitation [None]
  - Disturbance in attention [None]
  - Toxicity to various agents [None]
  - Tachyphrenia [None]
  - Loss of personal independence in daily activities [None]
  - Drug ineffective [None]

NARRATIVE: CASE EVENT DATE: 20170526
